FAERS Safety Report 20546977 (Version 1)
Quarter: 2022Q1

REPORT INFORMATION
  Report Type: Spontaneous
  Country: US (occurrence: None)
  Receive Date: 20220303
  Receipt Date: 20220303
  Transmission Date: 20220423
  Serious: Yes (Hospitalization)
  Sender: FDA-Public Use
  Company Number: None

PATIENT
  Sex: Male

DRUGS (1)
  1. ONUREG [Suspect]
     Active Substance: AZACITIDINE
     Indication: Acute myeloid leukaemia
     Dosage: FREQUENCY : DAILY;?
     Route: 048
     Dates: start: 20210628

REACTIONS (11)
  - Loss of personal independence in daily activities [None]
  - Peripheral swelling [None]
  - Peripheral swelling [None]
  - Muscular weakness [None]
  - Muscular weakness [None]
  - White blood cell count decreased [None]
  - Haemoglobin decreased [None]
  - Blood sodium decreased [None]
  - Pulmonary oedema [None]
  - Pneumonia [None]
  - Weight decreased [None]
